FAERS Safety Report 24916937 (Version 1)
Quarter: 2025Q1

REPORT INFORMATION
  Report Type: Spontaneous
  Country: GB (occurrence: GB)
  Receive Date: 20250203
  Receipt Date: 20250203
  Transmission Date: 20250409
  Serious: Yes (Other)
  Sender: PFIZER
  Company Number: GB-MHRA-TPP40730278C8679374YC1737970074537

PATIENT
  Age: 58 Year
  Sex: Female
  Weight: 81 kg

DRUGS (15)
  1. ESTRADIOL [Suspect]
     Active Substance: ESTRADIOL
     Dates: start: 20250110
  2. CLARITHROMYCIN [Concomitant]
     Active Substance: CLARITHROMYCIN
     Indication: Ill-defined disorder
     Dosage: TAKE ONE EVERY 12 HRS
     Dates: start: 20241028, end: 20241104
  3. MOUNJARO [Concomitant]
     Active Substance: TIRZEPATIDE
     Indication: Ill-defined disorder
     Dates: start: 20250122
  4. ACYCLOVIR [Concomitant]
     Active Substance: ACYCLOVIR
     Indication: Ill-defined disorder
     Dosage: 1 TO BE TAKEN FOUR TIMES DAILY
     Dates: start: 20250123
  5. AQUEOUS [SOFT SOAP] [Concomitant]
     Indication: Ill-defined disorder
     Dates: start: 20250123
  6. BETNOVATE [Concomitant]
     Active Substance: BETAMETHASONE
     Indication: Ill-defined disorder
     Dosage: APPLY TO BE TAKEN TWICE DAILY
     Dates: start: 20250123
  7. PREDNISOLONE [Concomitant]
     Active Substance: PREDNISOLONE
     Indication: Ill-defined disorder
     Dosage: 4 DAILY FOR 3 DAYS
     Dates: start: 20250123, end: 20250126
  8. BLISSEL [Concomitant]
     Indication: Ill-defined disorder
     Dosage: APPLY ONE APPLICATORFUL AT BEDTIME FOR 3-4WEEKS...
     Dates: start: 20250127
  9. COCODAMOL [Concomitant]
     Active Substance: ACETAMINOPHEN\CODEINE PHOSPHATE
     Indication: Ill-defined disorder
     Dosage: ONE OR TWO TO BE TAKEN FOUR TIMES A DAY WHEN RE...
     Dates: start: 20180612
  10. LERCANIDIPINE HYDROCHLORIDE [Concomitant]
     Active Substance: LERCANIDIPINE HYDROCHLORIDE
     Indication: Ill-defined disorder
     Dosage: ONE TO BE TAKEN EACH DAY
     Dates: start: 20210726
  11. ATORVASTATIN [Concomitant]
     Active Substance: ATORVASTATIN
     Indication: Ill-defined disorder
     Dosage: ONE TO BE TAKEN EACH NIGHT
     Dates: start: 20210728
  12. EMPAGLIFLOZIN [Concomitant]
     Active Substance: EMPAGLIFLOZIN
     Indication: Ill-defined disorder
     Dosage: TAKE ONE DAILY IN THE MORNING
     Dates: start: 20211029
  13. LOSARTAN [Concomitant]
     Active Substance: LOSARTAN
     Indication: Ill-defined disorder
     Dosage: TAKE ONE DAILY
     Dates: start: 20220714
  14. DULOXETINE [Concomitant]
     Active Substance: DULOXETINE
     Indication: Ill-defined disorder
     Dosage: ONE TO BE TAKEN TWICE A DAY
     Dates: start: 20221201
  15. METFORMIN [Concomitant]
     Active Substance: METFORMIN HYDROCHLORIDE
     Indication: Ill-defined disorder
     Dosage: TAKE TWO WITH BREAKFAST  AND TWO WITH EVENING MEAL
     Dates: start: 20230823

REACTIONS (1)
  - Vaginal mucosal blistering [Recovering/Resolving]
